FAERS Safety Report 9216945 (Version 1)
Quarter: 2013Q2

REPORT INFORMATION
  Report Type: Spontaneous
  Country: US (occurrence: US)
  Receive Date: 20130408
  Receipt Date: 20130408
  Transmission Date: 20140414
  Serious: Yes (Life-Threatening, Hospitalization, Other)
  Sender: FDA-Public Use
  Company Number: US-GLAXOSMITHKLINE-A1013257A

PATIENT
  Age: 48 Year
  Sex: Male
  Weight: 65.9 kg

DRUGS (3)
  1. POTIGA [Suspect]
     Indication: CONVULSION
     Dosage: 50MG THREE TIMES PER DAY
     Route: 048
     Dates: start: 20121112, end: 20121115
  2. SEIZURE MEDICATION [Concomitant]
  3. MULTIPLE MEDICATION [Concomitant]

REACTIONS (5)
  - Urinary retention [Recovered/Resolved]
  - Urinary tract infection [Recovered/Resolved]
  - Status epilepticus [Recovered/Resolved]
  - Septic shock [Recovered/Resolved]
  - Urinary hesitation [Recovered/Resolved]
